FAERS Safety Report 6986909-3 (Version None)
Quarter: 2010Q3

REPORT INFORMATION
  Report Type: 
  Country: None (occurrence: None)
  Receive Date: 20100915
  Receipt Date: 20090811
  Transmission Date: 20110219
  Serious: No
  Sender: FDA-Public Use
  Company Number: US-WYE-H10547609

PATIENT
  Age: 82 Year
  Sex: Female

DRUGS (6)
  1. PRISTIQ [Suspect]
     Indication: DEPRESSION
     Route: 048
     Dates: start: 20090726, end: 20090731
  2. PRISTIQ [Suspect]
     Dosage: TOOK HALF A 50 MG TABLET DAILY
     Route: 048
     Dates: start: 20090801, end: 20090807
  3. ATIVAN [Concomitant]
  4. REMERON [Concomitant]
  5. LISINOPRIL [Concomitant]
  6. ZOCOR [Concomitant]

REACTIONS (7)
  - ABDOMINAL PAIN UPPER [None]
  - BACK PAIN [None]
  - CONSTIPATION [None]
  - DECREASED APPETITE [None]
  - DRUG WITHDRAWAL SYNDROME [None]
  - FATIGUE [None]
  - NAUSEA [None]
